FAERS Safety Report 7545464-X (Version None)
Quarter: 2011Q2

REPORT INFORMATION
  Report Type: 
  Country: None (occurrence: None)
  Receive Date: 20110614
  Receipt Date: 20110608
  Transmission Date: 20111010
  Serious: Yes (Other)
  Sender: FDA-Public Use
  Company Number: FR-AMGEN-FRASP2011029403

PATIENT
  Sex: Female

DRUGS (3)
  1. ALIMTA [Concomitant]
     Dosage: UNK
  2. NEULASTA [Suspect]
     Indication: CHEMOTHERAPY
     Dosage: UNK, AFTER CHEMO
     Dates: start: 20110308, end: 20110330
  3. ARANESP [Concomitant]
     Dosage: UNK
     Dates: start: 20110308, end: 20110308

REACTIONS (1)
  - HEPATIC ENZYME ABNORMAL [None]
